FAERS Safety Report 8275540-8 (Version None)
Quarter: 2012Q2

REPORT INFORMATION
  Report Type: 
  Country: None (occurrence: None)
  Receive Date: 20120412
  Receipt Date: 20120405
  Transmission Date: 20120825
  Serious: Yes (Death)
  Sender: FDA-Public Use
  Company Number: US-BRISTOL-MYERS SQUIBB COMPANY-16507485

PATIENT

DRUGS (1)
  1. NULOJIX [Suspect]
     Dosage: 1DF:2 DOSES

REACTIONS (1)
  - DEATH [None]
